FAERS Safety Report 5504570-1 (Version None)
Quarter: 2007Q4

REPORT INFORMATION
  Report Type: 
  Country: None (occurrence: None)
  Receive Date: 20071101
  Receipt Date: 20071023
  Transmission Date: 20080405
  Serious: Yes (Other)
  Sender: FDA-Public Use
  Company Number: US-GILEAD-2007-0013931

PATIENT
  Age: 24 Year
  Sex: Male

DRUGS (6)
  1. VIREAD [Suspect]
  2. ZITHROMAX [Suspect]
  3. REYATAZ [Suspect]
     Route: 048
  4. LAMIVUDINE [Suspect]
  5. BACTRIM [Suspect]
  6. VIDEX [Suspect]

REACTIONS (7)
  - ABDOMINAL PAIN [None]
  - BACTERIAL INFECTION [None]
  - GASTRITIS [None]
  - HEPATOMEGALY [None]
  - ILEUS PARALYTIC [None]
  - LYMPHADENOPATHY [None]
  - WEIGHT DECREASED [None]
